FAERS Safety Report 6414194-X (Version None)
Quarter: 2009Q4

REPORT INFORMATION
  Report Type: 
  Country: None (occurrence: None)
  Receive Date: 20091026
  Receipt Date: 20091013
  Transmission Date: 20100525
  Serious: Yes (Hospitalization, Other)
  Sender: FDA-Public Use
  Company Number: US-PFIZER INC-2007034382

PATIENT
  Sex: Female
  Weight: 75 kg

DRUGS (5)
  1. CHANTIX [Suspect]
     Indication: SMOKING CESSATION THERAPY
     Route: 048
     Dates: start: 20070404
  2. LIPITOR [Concomitant]
     Route: 048
  3. QUINAPRIL [Concomitant]
     Route: 048
  4. HYDROCHLOROTHIAZIDE [Concomitant]
     Route: 048
  5. NORVASC [Concomitant]
     Route: 048

REACTIONS (11)
  - ANGER [None]
  - CHEST PAIN [None]
  - GASTROOESOPHAGEAL REFLUX DISEASE [None]
  - HEADACHE [None]
  - IRRITABILITY [None]
  - NAUSEA [None]
  - NIGHTMARE [None]
  - PAIN [None]
  - PHARYNGEAL HAEMORRHAGE [None]
  - UPPER AIRWAY OBSTRUCTION [None]
  - VOCAL CORD POLYP [None]
